FAERS Safety Report 15617469 (Version 6)
Quarter: 2020Q1

REPORT INFORMATION
  Report Type: Spontaneous
  Country: JP (occurrence: JP)
  Receive Date: 20181114
  Receipt Date: 20200203
  Transmission Date: 20200409
  Serious: Yes (Life-Threatening, Hospitalization, Disabling, Other)
  Sender: FDA-Public Use
  Company Number: JP-BRISTOL-MYERS SQUIBB COMPANY-BMS-2018-107169

PATIENT
  Age: 65 Year
  Sex: Male
  Weight: 49 kg

DRUGS (3)
  1. OPDIVO [Suspect]
     Active Substance: NIVOLUMAB
     Indication: HEAD AND NECK CANCER
     Dosage: 161 MG, QD
     Route: 041
     Dates: start: 20180109, end: 20181029
  2. THYRADIN S [Concomitant]
     Active Substance: LEVOTHYROXINE SODIUM
     Indication: HYPOTHYROIDISM
     Dosage: 62.5 MICROGRAM EVERYDAY
     Route: 048
     Dates: start: 20180104
  3. CORTRIL [Concomitant]
     Active Substance: HYDROCORTISONE
     Indication: SECONDARY ADRENOCORTICAL INSUFFICIENCY
     Dosage: 15 MILLIGRAM EVERYDAY
     Route: 065
     Dates: start: 20180719

REACTIONS (4)
  - Secondary adrenocortical insufficiency [Not Recovered/Not Resolved]
  - Diabetic ketosis [Unknown]
  - Type 1 diabetes mellitus [Not Recovered/Not Resolved]
  - Malaise [Unknown]

NARRATIVE: CASE EVENT DATE: 201803
